APPROVED DRUG PRODUCT: PRAMIPEXOLE DIHYDROCHLORIDE
Active Ingredient: PRAMIPEXOLE DIHYDROCHLORIDE
Strength: 1.5MG
Dosage Form/Route: TABLET;ORAL
Application: A078551 | Product #005
Applicant: HERITAGE PHARMA LABS INC DBA AVET PHARMACEUTICALS LABS INC
Approved: Oct 8, 2010 | RLD: No | RS: No | Type: DISCN